FAERS Safety Report 17592030 (Version 1)
Quarter: 2020Q1

REPORT INFORMATION
  Report Type: Spontaneous
  Country: US (occurrence: US)
  Receive Date: 20200327
  Receipt Date: 20200327
  Transmission Date: 20200409
  Serious: Yes (Hospitalization, Other)
  Sender: FDA-Public Use
  Company Number: US-SCIEGEN PHARMACEUTICALS INC-2020SCILIT00070

PATIENT
  Age: 14 Year
  Sex: Male

DRUGS (4)
  1. ARIPIPRAZOLE. [Suspect]
     Active Substance: ARIPIPRAZOLE
  2. ACTIVATED CHARCOAL. [Interacting]
     Active Substance: ACTIVATED CHARCOAL
  3. SODIUM BICARBONATE. [Interacting]
     Active Substance: SODIUM BICARBONATE
  4. CITALOPRAM [Concomitant]
     Active Substance: CITALOPRAM HYDROBROMIDE

REACTIONS (11)
  - Electrocardiogram QRS complex prolonged [Recovered/Resolved]
  - Overdose [Unknown]
  - Somnolence [Unknown]
  - Electrocardiogram QT interval [Unknown]
  - Intentional product misuse [Unknown]
  - Hypomagnesaemia [Unknown]
  - Bundle branch block left [Unknown]
  - Hypocalcaemia [Unknown]
  - Sinus tachycardia [Unknown]
  - Dystonia [Recovered/Resolved]
  - Hypokalaemia [Unknown]
